FAERS Safety Report 10095783 (Version 1)
Quarter: 2014Q2

REPORT INFORMATION
  Report Type: Spontaneous
  Country: US (occurrence: US)
  Receive Date: 20140422
  Receipt Date: 20140422
  Transmission Date: 20141212
  Serious: Yes (Death)
  Sender: FDA-Public Use
  Company Number: US-SA-2014SA049401

PATIENT
  Age: 60 Year
  Sex: Male

DRUGS (1)
  1. RENVELA [Suspect]
     Indication: HYPERPHOSPHATAEMIA
     Dosage: DOSE: ONE 800 MG TABLET TWO OR THREE TIMES A DAY WITH MEALS
     Route: 048
     Dates: end: 20140414

REACTIONS (1)
  - Myocardial infarction [Fatal]
